FAERS Safety Report 6464311-0 (Version None)
Quarter: 2009Q4

REPORT INFORMATION
  Report Type: 
  Country: None (occurrence: None)
  Receive Date: 20091130
  Receipt Date: 20091130
  Transmission Date: 20100525
  Serious: No
  Sender: FDA-Public Use
  Company Number: None

PATIENT
  Sex: Female
  Weight: 81.6475 kg

DRUGS (1)
  1. CRESTOR [Suspect]
     Dosage: 5 MG ONCE DAILY ORAL
     Route: 048

REACTIONS (1)
  - HAIR COLOUR CHANGES [None]
